FAERS Safety Report 6987669-2 (Version None)
Quarter: 2010Q3

REPORT INFORMATION
  Report Type: 
  Country: None (occurrence: None)
  Receive Date: 20100916
  Receipt Date: 20100903
  Transmission Date: 20110219
  Serious: Yes (Other)
  Sender: FDA-Public Use
  Company Number: US-ELI_LILLY_AND_COMPANY-US201008000763

PATIENT
  Sex: Female

DRUGS (6)
  1. FORTEO [Suspect]
     Indication: OSTEOPOROSIS
     Dosage: 20 UG, DAILY (1/D)
     Dates: start: 20100616, end: 20100723
  2. RISPERDAL [Concomitant]
     Dosage: 1 D/F, DAILY (1/D)
  3. STRONTIUM CHLORIDE [Concomitant]
     Dosage: 68 MG, DAILY (1/D)
  4. LOVAZA [Concomitant]
     Dosage: 1 D/F, DAILY (1/D)
  5. ATENOLOL [Concomitant]
     Dosage: 50 MG, DAILY (1/D)
  6. DIGESTIVE ENZYMES [Concomitant]
     Dosage: 1 D/F, 3/D

REACTIONS (1)
  - LIP AND/OR ORAL CAVITY CANCER [None]
